FAERS Safety Report 20787780 (Version 1)
Quarter: 2022Q2

REPORT INFORMATION
  Report Type: Spontaneous
  Country: US (occurrence: US)
  Receive Date: 20220505
  Receipt Date: 20220505
  Transmission Date: 20220721
  Serious: Yes (Hospitalization)
  Sender: FDA-Public Use
  Company Number: US-NOVOPROD-913905

PATIENT
  Sex: Female

DRUGS (1)
  1. OZEMPIC [Suspect]
     Active Substance: SEMAGLUTIDE
     Indication: Product used for unknown indication
     Dosage: 025 MG
     Route: 058

REACTIONS (9)
  - Chest pain [Unknown]
  - Headache [Unknown]
  - Vision blurred [Unknown]
  - Dry mouth [Unknown]
  - Ophthalmic migraine [Unknown]
  - Condition aggravated [Unknown]
  - Dizziness [Unknown]
  - Flatulence [Unknown]
  - Constipation [Unknown]
